FAERS Safety Report 10817787 (Version 7)
Quarter: 2015Q2

REPORT INFORMATION
  Report Type: Report from Study
  Country: NZ (occurrence: NZ)
  Receive Date: 20150218
  Receipt Date: 20150604
  Transmission Date: 20150821
  Serious: Yes (Hospitalization, Other)
  Sender: FDA-Public Use
  Company Number: NZ-ABBVIE-15K-118-1346061-00

PATIENT
  Sex: Female

DRUGS (5)
  1. HUMIRA [Suspect]
     Active Substance: ADALIMUMAB
     Dosage: 1 DOSE
     Route: 065
     Dates: start: 20150119, end: 20150119
  2. HUMIRA [Suspect]
     Active Substance: ADALIMUMAB
     Indication: CROHN^S DISEASE
     Route: 065
     Dates: start: 2012, end: 2013
  3. BUDESONIDE. [Suspect]
     Active Substance: BUDESONIDE
     Indication: PRODUCT USED FOR UNKNOWN INDICATION
     Route: 065
  4. HUMIRA [Suspect]
     Active Substance: ADALIMUMAB
     Route: 065
     Dates: start: 20150202
  5. HUMIRA [Suspect]
     Active Substance: ADALIMUMAB
     Route: 065
     Dates: start: 20150202, end: 20150202

REACTIONS (25)
  - Chills [Unknown]
  - Emotional disorder [Unknown]
  - Arthralgia [Unknown]
  - Contusion [Unknown]
  - Scratch [Unknown]
  - Renal impairment [Unknown]
  - Adverse reaction [Unknown]
  - Fear of eating [Unknown]
  - Bipolar disorder [Not Recovered/Not Resolved]
  - Sinusitis [Not Recovered/Not Resolved]
  - Anxiety [Unknown]
  - Panic attack [Unknown]
  - Influenza [Recovering/Resolving]
  - Insomnia [Unknown]
  - Psoriasis [Not Recovered/Not Resolved]
  - Mood altered [Unknown]
  - Intestinal obstruction [Unknown]
  - Oedema [Recovering/Resolving]
  - Crohn^s disease [Unknown]
  - Hospitalisation [Unknown]
  - Myalgia [Unknown]
  - Nausea [Unknown]
  - Intestinal stenosis [Not Recovered/Not Resolved]
  - Oropharyngeal pain [Not Recovered/Not Resolved]
  - Influenza [Unknown]

NARRATIVE: CASE EVENT DATE: 2015
